FAERS Safety Report 10159491 (Version 2)
Quarter: 2014Q3

REPORT INFORMATION
  Report Type: Report from Study
  Country: US (occurrence: US)
  Receive Date: 20140508
  Receipt Date: 20140709
  Transmission Date: 20150326
  Serious: Yes (Other)
  Sender: FDA-Public Use
  Company Number: US-PURDUE-USA-2014-0113608

PATIENT
  Age: 63 Year
  Sex: Female

DRUGS (1)
  1. OXYCONTIN [Suspect]
     Active Substance: OXYCODONE HYDROCHLORIDE
     Indication: TUMOUR PAIN
     Dosage: 60 MG, Q8H
     Route: 048
     Dates: start: 201107

REACTIONS (2)
  - Upper limb fracture [Not Recovered/Not Resolved]
  - Fall [Not Recovered/Not Resolved]

NARRATIVE: CASE EVENT DATE: 201404
